FAERS Safety Report 24067513 (Version 1)
Quarter: 2024Q3

REPORT INFORMATION
  Report Type: Spontaneous
  Country: DE (occurrence: DE)
  Receive Date: 20240709
  Receipt Date: 20240709
  Transmission Date: 20241016
  Serious: Yes (Other)
  Sender: GLAXOSMITHKLINE
  Company Number: DE-GLAXOSMITHKLINE-DE2024EME084494

PATIENT

DRUGS (1)
  1. NUCALA [Suspect]
     Active Substance: MEPOLIZUMAB
     Indication: Product used for unknown indication
     Dosage: 100 MG
     Dates: start: 20240620

REACTIONS (2)
  - Suicidal ideation [Unknown]
  - Depressive symptom [Unknown]
